FAERS Safety Report 8965628 (Version 1)
Quarter: 2012Q4

REPORT INFORMATION
  Report Type: Spontaneous
  Country: US (occurrence: None)
  Receive Date: 20121212
  Receipt Date: 20121212
  Transmission Date: 20130627
  Serious: No
  Sender: FDA-Public Use
  Company Number: None

PATIENT
  Age: 64 Year
  Sex: Female
  Weight: 68.04 kg

DRUGS (1)
  1. PANTOPRAZOLE SODIUM [Suspect]
     Indication: GERD
     Dates: start: 20121106, end: 20121207

REACTIONS (8)
  - Eructation [None]
  - Gastric pH decreased [None]
  - Abdominal distension [None]
  - Abnormal faeces [None]
  - Faeces discoloured [None]
  - Product substitution issue [None]
  - Product quality issue [None]
  - Economic problem [None]
